FAERS Safety Report 19854142 (Version 5)
Quarter: 2023Q4

REPORT INFORMATION
  Report Type: Spontaneous
  Country: US (occurrence: US)
  Receive Date: 20210920
  Receipt Date: 20231030
  Transmission Date: 20240109
  Serious: Yes (Other)
  Sender: FDA-Public Use
  Company Number: US-NOVARTISTESTPH-NVSC2021US210203

PATIENT
  Sex: Female

DRUGS (3)
  1. DIOVAN [Suspect]
     Active Substance: VALSARTAN
     Indication: Product used for unknown indication
     Dosage: 160 MG
     Route: 065
  2. DIOVAN [Suspect]
     Active Substance: VALSARTAN
     Dosage: UNK
     Route: 065
  3. HYDROCHLOROTHIAZIDE [Suspect]
     Active Substance: HYDROCHLOROTHIAZIDE
     Indication: Product used for unknown indication
     Dosage: UNK
     Route: 065

REACTIONS (8)
  - Blood pressure increased [Unknown]
  - Somnolence [Unknown]
  - Blood urine present [Unknown]
  - Weight decreased [Unknown]
  - Hypotension [Unknown]
  - Blood pressure decreased [Unknown]
  - Incorrect dose administered [Unknown]
  - Drug ineffective [Unknown]
